FAERS Safety Report 25208930 (Version 2)
Quarter: 2025Q2

REPORT INFORMATION
  Report Type: Spontaneous
  Country: US (occurrence: US)
  Receive Date: 20250417
  Receipt Date: 20250428
  Transmission Date: 20250716
  Serious: No
  Sender: BRISTOL-MYERS SQUIBB COMPANY
  Company Number: US-BRISTOL-MYERS SQUIBB COMPANY-2025-055889

PATIENT
  Age: 70 Year
  Sex: Female
  Weight: 70.31 kg

DRUGS (2)
  1. REVLIMID [Suspect]
     Active Substance: LENALIDOMIDE
     Indication: Plasma protein metabolism disorder
     Route: 048
  2. REVLIMID [Suspect]
     Active Substance: LENALIDOMIDE
     Indication: Necrotising colitis

REACTIONS (3)
  - Fatigue [Not Recovered/Not Resolved]
  - Off label use [Unknown]
  - Brain fog [Not Recovered/Not Resolved]
